FAERS Safety Report 16166050 (Version 1)
Quarter: 2019Q2

REPORT INFORMATION
  Report Type: Spontaneous
  Country: FR (occurrence: FR)
  Receive Date: 20190406
  Receipt Date: 20190406
  Transmission Date: 20190711
  Serious: Yes (Hospitalization)
  Sender: FDA-Public Use
  Company Number: FR-ACCORD-118093

PATIENT
  Age: 46 Year
  Sex: Male

DRUGS (9)
  1. DOXORUBICIN [Suspect]
     Active Substance: DOXORUBICIN
     Indication: PRODUCT USED FOR UNKNOWN INDICATION
     Dosage: DATE AND TIME OF LAST ADMINISTRATION: 16-MAY-2014
     Route: 042
     Dates: start: 20140425
  2. CORTANCYL [Suspect]
     Active Substance: PREDNISONE
     Indication: PRODUCT USED FOR UNKNOWN INDICATION
     Dosage: DATE AND TIME OF LAST ADMINISTRATION: 09-MAY-2014
     Route: 048
     Dates: start: 20140428
  3. GRANOCYTE [Suspect]
     Active Substance: LENOGRASTIM
     Indication: PRODUCT USED FOR UNKNOWN INDICATION
     Dosage: DATE AND TIME OF LAST ADMINISTRATION: 28-MAY-2014
     Route: 042
     Dates: start: 20140509
  4. VINCRISTINE [Suspect]
     Active Substance: VINCRISTINE
     Indication: PRODUCT USED FOR UNKNOWN INDICATION
     Dosage: DATE AND TIME OF LAST ADMINISTRATION: 23-MAY-2014
     Route: 042
     Dates: start: 20140502
  5. UROMITEXAN [Suspect]
     Active Substance: MESNA
     Indication: PRODUCT USED FOR UNKNOWN INDICATION
     Dosage: DATE AND TIME OF LAST ADMINISTRATION: 16-MAY-2014
     Route: 048
     Dates: start: 20140425
  6. AUGMENTIN [Suspect]
     Active Substance: AMOXICILLIN\CLAVULANATE POTASSIUM
     Indication: PRODUCT USED FOR UNKNOWN INDICATION
     Dosage: DATE AND TIME OF LAST ADMINISTRATION: 03-JUN-2014
     Route: 048
     Dates: start: 20140509
  7. ENDOXAN [Suspect]
     Active Substance: CYCLOPHOSPHAMIDE
     Indication: PRODUCT USED FOR UNKNOWN INDICATION
     Dosage: DATE AND TIME OF LAST ADMINISTRATION: 18-MAY-2014
     Route: 042
     Dates: start: 20140425
  8. NATULAN [Suspect]
     Active Substance: PROCARBAZINE HYDROCHLORIDE
     Indication: PRODUCT USED FOR UNKNOWN INDICATION
     Dosage: DATE AND TIME OF LAST ADMINISTRATION: 22-MAY-2014
     Route: 048
     Dates: start: 20140425
  9. ETOPOSIDE. [Suspect]
     Active Substance: ETOPOSIDE
     Indication: PRODUCT USED FOR UNKNOWN INDICATION
     Dosage: DATE AND TIME OF LAST ADMINISTRATION: 16-MAY-2014
     Route: 042
     Dates: start: 20140425

REACTIONS (1)
  - Interstitial lung disease [Unknown]

NARRATIVE: CASE EVENT DATE: 20140601
